FAERS Safety Report 18231267 (Version 1)
Quarter: 2020Q3

REPORT INFORMATION
  Report Type: Spontaneous
  Country: TW (occurrence: TW)
  Receive Date: 20200904
  Receipt Date: 20200904
  Transmission Date: 20201103
  Serious: Yes (Other)
  Sender: FDA-Public Use
  Company Number: TW-GLAXOSMITHKLINE-TW2020174423

PATIENT
  Age: 14 Year
  Sex: Male

DRUGS (1)
  1. LAMISIL AT [Suspect]
     Active Substance: TERBINAFINE HYDROCHLORIDE
     Indication: FUNGAL SKIN INFECTION
     Dosage: UNK
     Dates: start: 20200827

REACTIONS (6)
  - Skin exfoliation [Recovered/Resolved]
  - Haemorrhage [Recovered/Resolved]
  - Skin discolouration [Recovered/Resolved]
  - Pruritus [Recovered/Resolved]
  - Dry skin [Recovered/Resolved]
  - Drug ineffective [Recovered/Resolved]
